FAERS Safety Report 26000809 (Version 1)
Quarter: 2025Q4

REPORT INFORMATION
  Report Type: Spontaneous
  Country: PR (occurrence: PR)
  Receive Date: 20251105
  Receipt Date: 20251105
  Transmission Date: 20260118
  Serious: No
  Sender: ANI
  Company Number: PR-ANIPHARMA-2025-PR-000083

PATIENT
  Age: 51 Year
  Sex: Female
  Weight: 78.47 kg

DRUGS (6)
  1. CORTICOTROPIN [Suspect]
     Active Substance: CORTICOTROPIN
     Indication: Multiple sclerosis relapse
     Dosage: 80 UNITS DAILY FOR 15 DAYS
     Route: 030
     Dates: start: 20250805, end: 20250820
  2. TRAMADOL [Concomitant]
     Active Substance: TRAMADOL
  3. VITAMIN B12 [Concomitant]
     Active Substance: CYANOCOBALAMIN
  4. DICLOFENAC [Concomitant]
     Active Substance: DICLOFENAC
  5. VITAMIN B3 [Concomitant]
     Active Substance: NIACIN
  6. BACLOFEN [Interacting]
     Active Substance: BACLOFEN

REACTIONS (1)
  - Taste disorder [Unknown]

NARRATIVE: CASE EVENT DATE: 20250801
